FAERS Safety Report 9687787 (Version 1)
Quarter: 2013Q4

REPORT INFORMATION
  Report Type: Spontaneous
  Country: US (occurrence: None)
  Receive Date: 20131113
  Receipt Date: 20131113
  Transmission Date: 20140711
  Serious: Yes (Hospitalization)
  Sender: FDA-Public Use
  Company Number: None

PATIENT
  Age: 68 Year
  Sex: Male
  Weight: 74.8 kg

DRUGS (8)
  1. XARELTO [Suspect]
     Indication: PULMONARY EMBOLISM
     Dosage: 1 PILL
     Route: 048
     Dates: start: 20131101, end: 20131112
  2. ZOFRAN [Concomitant]
  3. CYMBALTA 30 MG [Concomitant]
  4. SUDAFED 60 MG [Concomitant]
  5. MULTIVITAMIN DAILY [Concomitant]
  6. OXYCODONE [Concomitant]
  7. PERCOCET 5/325 [Concomitant]
  8. LIPITOR 20 MG [Concomitant]

REACTIONS (1)
  - Upper gastrointestinal haemorrhage [None]
